FAERS Safety Report 24335032 (Version 2)
Quarter: 2024Q3

REPORT INFORMATION
  Report Type: Spontaneous
  Country: JP (occurrence: JP)
  Receive Date: 20240918
  Receipt Date: 20240930
  Transmission Date: 20241017
  Serious: Yes (Hospitalization)
  Sender: INSMED
  Company Number: JP-INSMED, INC.-2024-03626-JP

PATIENT
  Age: 78 Year
  Sex: Male

DRUGS (1)
  1. ARIKAYCE [Suspect]
     Active Substance: AMIKACIN
     Indication: Mycobacterium avium complex infection
     Dosage: UNK, TIW
     Route: 055
     Dates: start: 20240724

REACTIONS (4)
  - Mycobacterium avium complex infection [Unknown]
  - Off label use [Unknown]
  - Wrong technique in device usage process [Unknown]
  - Device leakage [Unknown]
